FAERS Safety Report 9490375 (Version 1)
Quarter: 2013Q3

REPORT INFORMATION
  Report Type: Spontaneous
  Country: FR (occurrence: FR)
  Receive Date: 20130830
  Receipt Date: 20130830
  Transmission Date: 20140515
  Serious: Yes (Hospitalization)
  Sender: FDA-Public Use
  Company Number: FR-ASTRAZENECA-2013SE65202

PATIENT
  Age: 29282 Day
  Sex: Female

DRUGS (11)
  1. INEXIUM [Suspect]
     Indication: PROPHYLAXIS
     Route: 048
  2. AVLOCARDYL [Suspect]
     Indication: HYPERTENSION
     Route: 048
  3. NORSET [Suspect]
     Indication: AGITATION
     Route: 048
     Dates: start: 20130705
  4. RISPERDALORO [Suspect]
     Indication: ABNORMAL BEHAVIOUR
     Route: 048
     Dates: start: 20130713, end: 20130715
  5. TRIVASTAL SR [Suspect]
     Indication: TREMOR
     Route: 048
     Dates: end: 20130718
  6. LASILIX [Suspect]
     Indication: HYPERTENSION
     Route: 048
  7. PREVISCAN [Suspect]
     Indication: PROPHYLAXIS
     Route: 048
  8. CEFTRIAXONE [Suspect]
     Indication: INFECTION
     Route: 042
     Dates: start: 20130701, end: 20130713
  9. ATARAX [Suspect]
     Indication: AGITATION
     Route: 048
     Dates: start: 20130704, end: 20130710
  10. IMOVANE [Suspect]
     Indication: AGITATION
     Route: 048
     Dates: start: 20130705
  11. XANAX [Suspect]
     Indication: CONFUSIONAL STATE
     Route: 048
     Dates: start: 20130712

REACTIONS (6)
  - Bronchitis [Unknown]
  - Cardiac failure acute [Unknown]
  - Neutropenia [Not Recovered/Not Resolved]
  - Abnormal behaviour [Unknown]
  - Agitation [Unknown]
  - Confusional state [Unknown]
